FAERS Safety Report 9490893 (Version 1)
Quarter: 2013Q3

REPORT INFORMATION
  Report Type: Spontaneous
  Country: US (occurrence: US)
  Receive Date: 20130830
  Receipt Date: 20130830
  Transmission Date: 20140515
  Serious: No
  Sender: FDA-Public Use
  Company Number: US-PFIZER INC-2013246606

PATIENT
  Sex: Female

DRUGS (2)
  1. INLYTA [Suspect]
     Dosage: UNK
  2. INLYTA [Suspect]
     Dosage: 5MG THREE TIMES WEEKLY

REACTIONS (1)
  - Stomatitis [Unknown]
